FAERS Safety Report 10204584 (Version 1)
Quarter: 2014Q2

REPORT INFORMATION
  Report Type: Spontaneous
  Country: US (occurrence: None)
  Receive Date: 20140527
  Receipt Date: 20140527
  Transmission Date: 20141212
  Serious: No
  Sender: FDA-Public Use
  Company Number: None

PATIENT
  Age: 45 Year
  Sex: Female

DRUGS (1)
  1. OXYCODONE 30MG IMMED REL KV [Suspect]
     Indication: PAIN
     Dosage: 1, Q 4 H PRN, ORAL
     Route: 048
     Dates: start: 20140319, end: 20140517

REACTIONS (2)
  - Product substitution issue [None]
  - Drug effect decreased [None]
